FAERS Safety Report 4625962-9 (Version None)
Quarter: 2005Q1

REPORT INFORMATION
  Report Type: 
  Country: None (occurrence: None)
  Receive Date: 20050330
  Receipt Date: 20050317
  Transmission Date: 20050727
  Serious: Yes (Hospitalization, Other)
  Sender: FDA-Public Use
  Company Number: 2005047138

PATIENT
  Age: 39 Year
  Sex: Female

DRUGS (11)
  1. RELPAX [Suspect]
     Indication: PROPHYLAXIS
     Dosage: ORAL
     Route: 048
     Dates: start: 20050101
  2. TELITHROMYCIN (TELITHROMYCIN) [Suspect]
     Indication: INFECTION
     Dosage: ORAL
     Route: 048
     Dates: start: 20050211
  3. CORTICOSTEROIDS (CORTICOSTEROIDS) [Suspect]
     Indication: ANAPHYLACTIC REACTION
     Dates: start: 20050101
  4. IMMUNOGLOBULINS (IMMUNOGLOBULINS) [Suspect]
     Indication: ILL-DEFINED DISORDER
     Dosage: INTRAVENOUS
     Route: 042
  5. MONTELUKAST (MONTELUKAST) [Concomitant]
  6. CETIRIZINE HCL [Concomitant]
  7. METHYLPREDNISOLONE [Concomitant]
  8. MOMETASONE FUROATE [Concomitant]
  9. ORAL CONTRACEPTIVE NOS (ORAL CONTRACEPTIVE NOS) [Concomitant]
  10. MULTIVITAMINS (ASCORBIC ACID/ERGOCALCIFEROL/FOLIC ACID/NICOTINAMIDE/PA [Concomitant]
  11. BECLOMETHASONE DIPROPIONATE (BECLOMETHASONE DIPROPIONATE) [Concomitant]

REACTIONS (4)
  - ANAPHYLACTIC SHOCK [None]
  - FEELING ABNORMAL [None]
  - INFECTION [None]
  - WEIGHT INCREASED [None]
